FAERS Safety Report 4383463-X (Version None)
Quarter: 2004Q2

REPORT INFORMATION
  Report Type: 
  Country: None (occurrence: None)
  Receive Date: 20040622
  Receipt Date: 20040622
  Transmission Date: 20050107
  Serious: Yes (Hospitalization)
  Sender: FDA-Public Use
  Company Number: None

PATIENT
  Age: 70 Year
  Sex: Male
  Weight: 104.3273 kg

DRUGS (12)
  1. CARMUSTINE [Suspect]
     Indication: BRAIN NEOPLASM
     Dosage: 80 MG/M2 = 193 MG CYCLE 1 8/3-7/02, CYCLE 2 9/30-11/2/02
     Dates: start: 20020803
  2. CARMUSTINE [Suspect]
     Indication: GLIOBLASTOMA
     Dosage: 80 MG/M2 = 193 MG CYCLE 1 8/3-7/02, CYCLE 2 9/30-11/2/02
     Dates: start: 20020803
  3. CARMUSTINE [Suspect]
     Indication: BRAIN NEOPLASM
     Dosage: 80 MG/M2 = 193 MG CYCLE 1 8/3-7/02, CYCLE 2 9/30-11/2/02
     Dates: start: 20020806
  4. CARMUSTINE [Suspect]
     Indication: GLIOBLASTOMA
     Dosage: 80 MG/M2 = 193 MG CYCLE 1 8/3-7/02, CYCLE 2 9/30-11/2/02
     Dates: start: 20020806
  5. CARMUSTINE [Suspect]
     Indication: BRAIN NEOPLASM
     Dosage: 80 MG/M2 = 193 MG CYCLE 1 8/3-7/02, CYCLE 2 9/30-11/2/02
     Dates: start: 20020807
  6. CARMUSTINE [Suspect]
     Indication: GLIOBLASTOMA
     Dosage: 80 MG/M2 = 193 MG CYCLE 1 8/3-7/02, CYCLE 2 9/30-11/2/02
     Dates: start: 20020807
  7. CARMUSTINE [Suspect]
     Indication: BRAIN NEOPLASM
     Dosage: 80 MG/M2 = 193 MG CYCLE 1 8/3-7/02, CYCLE 2 9/30-11/2/02
     Dates: start: 20020930
  8. CARMUSTINE [Suspect]
     Indication: GLIOBLASTOMA
     Dosage: 80 MG/M2 = 193 MG CYCLE 1 8/3-7/02, CYCLE 2 9/30-11/2/02
     Dates: start: 20020930
  9. CARMUSTINE [Suspect]
     Indication: BRAIN NEOPLASM
     Dosage: 80 MG/M2 = 193 MG CYCLE 1 8/3-7/02, CYCLE 2 9/30-11/2/02
     Dates: start: 20021001
  10. CARMUSTINE [Suspect]
     Indication: GLIOBLASTOMA
     Dosage: 80 MG/M2 = 193 MG CYCLE 1 8/3-7/02, CYCLE 2 9/30-11/2/02
     Dates: start: 20021001
  11. CARMUSTINE [Suspect]
     Indication: BRAIN NEOPLASM
     Dosage: 80 MG/M2 = 193 MG CYCLE 1 8/3-7/02, CYCLE 2 9/30-11/2/02
     Dates: start: 20021107
  12. CARMUSTINE [Suspect]
     Indication: GLIOBLASTOMA
     Dosage: 80 MG/M2 = 193 MG CYCLE 1 8/3-7/02, CYCLE 2 9/30-11/2/02
     Dates: start: 20021107

REACTIONS (3)
  - CONVULSION [None]
  - DIZZINESS [None]
  - PNEUMONIA [None]
